FAERS Safety Report 4837319-6 (Version None)
Quarter: 2005Q4

REPORT INFORMATION
  Report Type: 
  Country: None (occurrence: None)
  Receive Date: 20051122
  Receipt Date: 20051109
  Transmission Date: 20060501
  Serious: Yes (Other)
  Sender: FDA-Public Use
  Company Number: 2005154490

PATIENT
  Age: 65 Year
  Sex: Male

DRUGS (3)
  1. XALATAN [Suspect]
     Indication: GLAUCOMA
     Dosage: 1 DROP IN EACH EYE DAILY (1 DROP), OPHTHALMIC
     Route: 047
  2. ALPHAGAN [Concomitant]
  3. COSOPT [Concomitant]

REACTIONS (1)
  - VISUAL FIELD DEFECT [None]
